FAERS Safety Report 7740962-8 (Version None)
Quarter: 2011Q3

REPORT INFORMATION
  Report Type: 
  Country: None (occurrence: None)
  Receive Date: 20110909
  Receipt Date: 20110906
  Transmission Date: 20111222
  Serious: Yes (Life-Threatening)
  Sender: FDA-Public Use
  Company Number: GB-PFIZER INC-2011144704

PATIENT
  Sex: Female

DRUGS (2)
  1. MIFEPRISTONE [Concomitant]
     Indication: ABORTION INDUCED
     Dosage: 200 MG, UNK
     Route: 048
     Dates: start: 20110612, end: 20110612
  2. MISOPROSTOL [Suspect]
     Indication: ABORTION INDUCED
     Dosage: 800 UG, UNK
     Route: 067
     Dates: start: 20110614, end: 20110614

REACTIONS (5)
  - OFF LABEL USE [None]
  - PYREXIA [None]
  - TREMOR [None]
  - CIRCULATORY COLLAPSE [None]
  - HYPERVENTILATION [None]
